FAERS Safety Report 9161021 (Version 1)
Quarter: 2013Q1

REPORT INFORMATION
  Report Type: Spontaneous
  Country: JP (occurrence: JP)
  Receive Date: 20130313
  Receipt Date: 20130313
  Transmission Date: 20140127
  Serious: Yes (Other)
  Sender: FDA-Public Use
  Company Number: JP-OTSUKA-JP-2011-10195

PATIENT
  Age: 44 Year
  Sex: Male
  Weight: 50 kg

DRUGS (14)
  1. SAMSCA [Suspect]
     Indication: CARDIAC FAILURE
     Dosage: 7.5 MG MILLIGRAM(S), QD
     Route: 048
     Dates: start: 20110125, end: 20110131
  2. LASIX [Suspect]
     Indication: CARDIAC FAILURE
     Dosage: 120 MG MILLIGRAM(S), DAILY DOSE
     Route: 048
  3. BEPRICOR [Concomitant]
     Indication: VENTRICULAR TACHYCARDIA
     Dosage: 200 MG MILLIGRAM(S), DAILY DOSE
     Route: 048
  4. DIOVAN [Concomitant]
     Indication: CARDIAC FAILURE
     Dosage: 40 MG MILLIGRAM(S), QD
     Route: 048
  5. MEXITIL [Concomitant]
     Indication: VENTRICULAR TACHYCARDIA
     Dosage: 100 MG MILLIGRAM(S), TID
     Route: 048
  6. TAGAMET [Concomitant]
     Indication: GASTRITIS PROPHYLAXIS
     Dosage: 100 MG MILLIGRAM(S), BID
     Route: 048
  7. MUCOSTA [Concomitant]
     Indication: GASTRITIS PROPHYLAXIS
     Dosage: 100 MG MILLIGRAM(S), TID
     Route: 048
  8. ARTIST [Concomitant]
     Indication: CARDIAC FAILURE
     Dosage: 10 MG MILLIGRAM(S), BID
     Route: 048
  9. PIMOBENDAN [Concomitant]
     Indication: CARDIAC FAILURE
     Dosage: 2.5 MG MILLIGRAM(S), BID
     Route: 048
  10. WARFARIN [Concomitant]
     Indication: CARDIAC FAILURE
     Dosage: UNK
     Route: 048
  11. SELARA [Concomitant]
     Indication: CARDIAC FAILURE
     Dosage: UNK
     Route: 048
  12. LOXONIN [Concomitant]
     Indication: SINUSITIS
     Dosage: UNK
     Route: 065
  13. DEPAS [Concomitant]
     Indication: SINUSITIS
     Dosage: UNK
     Route: 048
  14. MUCODYNE [Concomitant]
     Indication: SINUSITIS
     Dosage: UNK
     Route: 048

REACTIONS (7)
  - Renal impairment [Recovering/Resolving]
  - Diarrhoea [Recovered/Resolved]
  - Dehydration [Recovered/Resolved]
  - Abdominal pain [Recovered/Resolved]
  - Hyponatraemia [Recovered/Resolved]
  - Intestinal mucosal hypertrophy [Recovering/Resolving]
  - Decreased appetite [Unknown]
